FAERS Safety Report 11390648 (Version 1)
Quarter: 2015Q3

REPORT INFORMATION
  Report Type: Spontaneous
  Country: GB (occurrence: None)
  Receive Date: 20150813
  Receipt Date: 20150813
  Transmission Date: 20151125
  Serious: Yes (Other)
  Sender: FDA-Public Use
  Company Number: 2015RR-101299

PATIENT
  Age: 72 Year
  Sex: Male
  Weight: 78.9 kg

DRUGS (4)
  1. LISINOPRIL. [Concomitant]
     Active Substance: LISINOPRIL
  2. AMLODIPINE [Concomitant]
     Active Substance: AMLODIPINE BESYLATE
  3. IBUPROFEN (IBUPROFEN) [Concomitant]
     Active Substance: IBUPROFEN
  4. ATORVASTATIN (ATORVASTATIN) UNKNOWN [Suspect]
     Active Substance: ATORVASTATIN
     Indication: BLOOD CHOLESTEROL INCREASED
     Route: 048
     Dates: start: 201404

REACTIONS (4)
  - Myalgia [None]
  - Insomnia [None]
  - Headache [None]
  - Dyspnoea exertional [None]

NARRATIVE: CASE EVENT DATE: 201409
